FAERS Safety Report 24159125 (Version 1)
Quarter: 2024Q3

REPORT INFORMATION
  Report Type: Report from Study
  Country: MX (occurrence: MX)
  Receive Date: 20240731
  Receipt Date: 20240731
  Transmission Date: 20241017
  Serious: Yes (Other)
  Sender: NOVARTIS
  Company Number: MX-002147023-NVSC2024MX154001

PATIENT
  Sex: Female
  Weight: 60 kg

DRUGS (8)
  1. EXFORGE HCT [Suspect]
     Active Substance: AMLODIPINE BESYLATE\HYDROCHLOROTHIAZIDE\VALSARTAN
     Indication: Hypertension
     Dosage: 0.5 DOSAGE FORM, QD (5/160/12.5 MG) (6 YEARS AGO)
     Route: 048
  2. EXFORGE HCT [Suspect]
     Active Substance: AMLODIPINE BESYLATE\HYDROCHLOROTHIAZIDE\VALSARTAN
     Dosage: UNK, 2/3 DOSAGE FORM
     Route: 065
  3. DIOVAN [Suspect]
     Active Substance: VALSARTAN
     Indication: Hypertension
     Dosage: 1 DOSAGE FORM, QD, BETWEEN JAN 2024 OR FEB 2024
     Route: 048
  4. DIOVAN [Suspect]
     Active Substance: VALSARTAN
     Dosage: 1 DOSAGE FORM, Q12H
     Route: 048
  5. BROMAZEPAM [Concomitant]
     Active Substance: BROMAZEPAM
     Indication: Anxiety
     Dosage: 1 DOSAGE FORM, QD, 15 YEARS AGO
     Route: 065
  6. BROMAZEPAM [Concomitant]
     Active Substance: BROMAZEPAM
     Dosage: 0.5 DOSAGE FORM
     Route: 065
  7. LIDAMIDINE HYDROCHLORIDE [Concomitant]
     Active Substance: LIDAMIDINE HYDROCHLORIDE
     Indication: Diarrhoea
     Dosage: 0.5 MG, Q12H, 5 YEARS AGO
     Route: 048
  8. LIDAMIDINE HYDROCHLORIDE [Concomitant]
     Active Substance: LIDAMIDINE HYDROCHLORIDE
     Dosage: 0.5 DOSAGE FORM, Q6H 1/2 TABLET EVERY 6 HOURS IF NEEDED, OR EVEN 1 WHOLE TABLET IF IT IS TOO STRONG)
     Route: 065

REACTIONS (15)
  - Hemianopia [Not Recovered/Not Resolved]
  - Gait disturbance [Unknown]
  - Dysstasia [Unknown]
  - Movement disorder [Unknown]
  - Maculopathy [Unknown]
  - Eyelid ptosis [Unknown]
  - Eye disorder [Unknown]
  - Tooth disorder [Unknown]
  - Kyphoscoliosis [Not Recovered/Not Resolved]
  - Pain [Unknown]
  - Blood pressure decreased [Unknown]
  - Oesophageal disorder [Unknown]
  - Dysphagia [Unknown]
  - Wrong technique in product usage process [Unknown]
  - Off label use [Unknown]
